FAERS Safety Report 6172107-2 (Version None)
Quarter: 2009Q2

REPORT INFORMATION
  Report Type: 
  Country: None (occurrence: None)
  Receive Date: 20090429
  Receipt Date: 20090420
  Transmission Date: 20091009
  Serious: Yes (Other)
  Sender: FDA-Public Use
  Company Number: DE-PFIZER INC-2009175966

PATIENT

DRUGS (3)
  1. SORTIS [Suspect]
     Indication: HYPERCHOLESTEROLAEMIA
     Dosage: 80MG DAILY
     Route: 048
     Dates: start: 20090201, end: 20090224
  2. FLUVASTATIN [Concomitant]
     Dosage: 80 MG, 1X/DAY
     Dates: end: 20090201
  3. ATACAND [Concomitant]
     Indication: HYPERTENSION

REACTIONS (1)
  - HEPATITIS TOXIC [None]
